FAERS Safety Report 8830820 (Version 2)
Quarter: 2012Q4

REPORT INFORMATION
  Report Type: 
  Country: US (occurrence: US)
  Receive Date: 20121009
  Receipt Date: 20121026
  Transmission Date: 20130627
  Serious: Yes (Other)
  Sender: FDA-Public Use
  Company Number: US-PFIZER INC-2012246681

PATIENT
  Age: 76 Year
  Sex: Male
  Weight: 81.63 kg

DRUGS (15)
  1. SUTENT [Suspect]
     Indication: RENAL CANCER
     Dosage: 50 mg, cyclic, daily
     Route: 048
  2. SUTENT [Suspect]
     Dosage: 25 mg, cyclic, daily
     Route: 048
  3. CRESTOR [Concomitant]
     Indication: BLOOD CHOLESTEROL ABNORMAL
     Dosage: 5 mg, 1x/day
  4. ZETIA [Concomitant]
     Indication: BLOOD CHOLESTEROL ABNORMAL
     Dosage: 5 mg, 1x/day
     Route: 048
  5. STALEVO 150 [Concomitant]
     Dosage: UNK, 3x/day
  6. RANITIDINE [Concomitant]
     Dosage: 300 mg, 1x/day
  7. DEXILANT [Concomitant]
     Dosage: 60 mg, 1x/day
  8. POTASSIUM [Concomitant]
     Dosage: 2 mg, 1x/day
  9. FOLIC ACID [Concomitant]
     Dosage: 1 mg, 1x/day
  10. FISH OIL [Concomitant]
     Dosage: 1000 mg, 1x/day
  11. CALCIUM [Concomitant]
     Indication: BONE DISORDER
     Dosage: UNK, 1x/day
  12. MIRAPEX [Concomitant]
     Dosage: 1.5 mg, 3x/day
  13. AZILECT [Concomitant]
     Dosage: 1 mg, 1x/day
  14. LEVOTHYROXINE [Concomitant]
     Dosage: 25 ug, 1x/day
  15. HYDROCORTISONE [Concomitant]
     Dosage: 20 mg, 2x/day

REACTIONS (1)
  - Osteonecrosis of jaw [Not Recovered/Not Resolved]
